FAERS Safety Report 21962429 (Version 1)
Quarter: 2023Q1

REPORT INFORMATION
  Report Type: Spontaneous
  Country: FR (occurrence: FR)
  Receive Date: 20230207
  Receipt Date: 20230207
  Transmission Date: 20230418
  Serious: Yes (Other)
  Sender: FDA-Public Use
  Company Number: None

PATIENT
  Age: 47 Year
  Sex: Female
  Weight: 84.5 kg

DRUGS (5)
  1. KEPPRA [Suspect]
     Active Substance: LEVETIRACETAM
     Indication: Seizure prophylaxis
     Dosage: UNK
     Route: 048
  2. GEMCITABINE [Suspect]
     Active Substance: GEMCITABINE
     Indication: Triple negative breast cancer
     Dosage: 1000 MILLIGRAM/SQ. METER, CYCLICAL
     Route: 042
     Dates: start: 20220916, end: 20230110
  3. INNOHEP [Suspect]
     Active Substance: TINZAPARIN SODIUM
     Indication: Seizure prophylaxis
     Dosage: 15000 INTERNATIONAL UNIT, ONCE DAILY (QD),18 000 U.I. ANTI-XA/0,9 ML
     Route: 058
     Dates: start: 20221230
  4. KEYTRUDA [Suspect]
     Active Substance: PEMBROLIZUMAB
     Indication: Triple negative breast cancer
     Dosage: 200 MILLIGRAM, EV 3 WEEKS 50 MG, POUDRE POUR SOLUTION ? DILUER POUR PERFUSION
     Route: 042
     Dates: start: 20220916, end: 20230103
  5. CARBOPLATIN [Suspect]
     Active Substance: CARBOPLATIN
     Indication: Triple negative breast cancer
     Dosage: CARBO AUC 1.8, 1 CYCLICAL
     Route: 042
     Dates: start: 20220916, end: 20230110

REACTIONS (3)
  - Anaemia [Not Recovered/Not Resolved]
  - Thrombocytopenia [Not Recovered/Not Resolved]
  - Cell death [Not Recovered/Not Resolved]

NARRATIVE: CASE EVENT DATE: 20221229
